FAERS Safety Report 8339207 (Version 2)
Quarter: 2016Q4

REPORT INFORMATION
  Report Type: Spontaneous
  Country: AU (occurrence: AU)
  Receive Date: 20120117
  Receipt Date: 20161004
  Transmission Date: 20170207
  Serious: Yes (Other)
  Sender: FDA-Public Use
  Company Number: AU-PFIZER INC-2012007129

PATIENT
  Age: 2 Year
  Sex: Female

DRUGS (2)
  1. PAMIDRONATE DISODIUM. [Suspect]
     Active Substance: PAMIDRONATE DISODIUM
     Indication: OSTEOGENESIS IMPERFECTA
     Dosage: 30 MG/M2 MONTHLY FOR 12 MONTHS, THEN 2 MONTHLY FOR 12 MONTHS
     Route: 042
  2. CALCITRIOL. [Suspect]
     Active Substance: CALCITRIOL
     Indication: OSTEOGENESIS IMPERFECTA
     Dosage: 0.25 UG, 2X/DAY

REACTIONS (1)
  - Nephrocalcinosis [Recovered/Resolved]
